FAERS Safety Report 17465544 (Version 8)
Quarter: 2021Q4

REPORT INFORMATION
  Report Type: Report from Study
  Country: NL (occurrence: NL)
  Receive Date: 20200227
  Receipt Date: 20211227
  Transmission Date: 20220303
  Serious: Yes (Hospitalization)
  Sender: FDA-Public Use
  Company Number: NL-ABBVIE-19S-114-2800930-00

PATIENT
  Sex: Male

DRUGS (7)
  1. CARBIDOPA\LEVODOPA [Suspect]
     Active Substance: CARBIDOPA\LEVODOPA
     Indication: Parkinson^s disease
     Dosage: CD INCREASED WITH 0.2ML TO 4.5ML?20 MG/ML 5 MG/ML
     Route: 050
     Dates: start: 20190211, end: 2019
  2. CARBIDOPA\LEVODOPA [Suspect]
     Active Substance: CARBIDOPA\LEVODOPA
     Dosage: MDD 3.0, CD 4.7, EDD 2.0, MDN 3.0, CDN 2.9 EDN 2.0
     Route: 050
     Dates: start: 2019
  3. CARBIDOPA\LEVODOPA [Suspect]
     Active Substance: CARBIDOPA\LEVODOPA
     Dosage: CND 3.2 ML/H
     Route: 050
  4. CARBIDOPA\LEVODOPA [Suspect]
     Active Substance: CARBIDOPA\LEVODOPA
     Dosage: CND 3.8 ML/H
     Route: 050
  5. CARBIDOPA\LEVODOPA [Suspect]
     Active Substance: CARBIDOPA\LEVODOPA
     Dosage: MD: 4.0 ML, CD: 4.8 ML/H, ED: 2.5 ML.
     Route: 050
  6. CARBIDOPA\LEVODOPA [Suspect]
     Active Substance: CARBIDOPA\LEVODOPA
     Dosage: MD: 4.0 ML, CD: 4.8 ML/H, ED: 2.0 ML, ND: 0 ML, CND: 3.2 ML/H, END: 2.0 ML.
     Route: 050
  7. POLYETHYLENE GLYCOLS [Concomitant]
     Active Substance: POLYETHYLENE GLYCOLS
     Indication: Dyschezia

REACTIONS (23)
  - Musculoskeletal stiffness [Not Recovered/Not Resolved]
  - Muscle rigidity [Not Recovered/Not Resolved]
  - Memory impairment [Recovered/Resolved]
  - Balance disorder [Recovering/Resolving]
  - Bradyphrenia [Recovered/Resolved]
  - Mobility decreased [Recovered/Resolved]
  - Dyschezia [Not Recovered/Not Resolved]
  - Weight increased [Recovered/Resolved]
  - Faeces hard [Not Recovered/Not Resolved]
  - Abnormal faeces [Recovered/Resolved]
  - Nocturia [Not Recovered/Not Resolved]
  - Immobile [Not Recovered/Not Resolved]
  - Tremor [Not Recovered/Not Resolved]
  - Gait disturbance [Recovered/Resolved]
  - On and off phenomenon [Not Recovered/Not Resolved]
  - Therapeutic response shortened [Unknown]
  - Bradykinesia [Not Recovered/Not Resolved]
  - Unevaluable event [Recovered/Resolved]
  - Confusional state [Not Recovered/Not Resolved]
  - Hallucination [Recovered/Resolved]
  - Therapeutic product effect incomplete [Not Recovered/Not Resolved]
  - Blood pressure increased [Unknown]
  - Blood pressure orthostatic decreased [Unknown]

NARRATIVE: CASE EVENT DATE: 20190101
